FAERS Safety Report 10674055 (Version 1)
Quarter: 2014Q4

REPORT INFORMATION
  Report Type: Spontaneous
  Country: BR (occurrence: BR)
  Receive Date: 20141224
  Receipt Date: 20141224
  Transmission Date: 20150529
  Serious: Yes (Death, Other)
  Sender: FDA-Public Use
  Company Number: PHHY2014BR168125

PATIENT
  Age: 52 Year
  Sex: Female

DRUGS (1)
  1. FORASEQ [Suspect]
     Active Substance: BUDESONIDE\FORMOTEROL FUMARATE
     Indication: PANIC DISORDER
     Dosage: 2 DF, BID (2 CAPSULES OF EACH TREATMENT, IN THE MORNING AND AT NIGHT)
     Route: 055

REACTIONS (2)
  - Product use issue [Unknown]
  - Breast cancer female [Fatal]
